FAERS Safety Report 6678221-7 (Version None)
Quarter: 2010Q2

REPORT INFORMATION
  Report Type: 
  Country: None (occurrence: None)
  Receive Date: 20100408
  Receipt Date: 20100408
  Transmission Date: 20101027
  Serious: Yes (Life-Threatening, Hospitalization)
  Sender: FDA-Public Use
  Company Number: None

PATIENT
  Age: 88 Year
  Sex: Female
  Weight: 53.978 kg

DRUGS (1)
  1. ABOBOTULINUM TOXIN UNITS TERCICA [Suspect]
     Indication: TORTICOLLIS
     Dosage: 400 UNITS ONCE IM
     Route: 030
     Dates: start: 20100224, end: 20100224

REACTIONS (1)
  - DYSPHAGIA [None]
